FAERS Safety Report 7366647-8 (Version None)
Quarter: 2011Q1

REPORT INFORMATION
  Report Type: 
  Country: None (occurrence: None)
  Receive Date: 20110310
  Receipt Date: 20110224
  Transmission Date: 20110831
  Serious: Yes (Hospitalization, Other)
  Sender: FDA-Public Use
  Company Number: 2011MA001928

PATIENT
  Age: 34 Year
  Sex: Female

DRUGS (2)
  1. TEGRETOL - SLOW RELEASE [Concomitant]
  2. FERROUS SUL ELX [Suspect]
     Indication: ANAEMIA
     Dosage: 200 MG;

REACTIONS (3)
  - PAIN [None]
  - APPENDICITIS [None]
  - TOXICITY TO VARIOUS AGENTS [None]
